FAERS Safety Report 10307559 (Version 1)
Quarter: 2014Q3

REPORT INFORMATION
  Report Type: Spontaneous
  Country: US (occurrence: None)
  Receive Date: 20140714
  Receipt Date: 20140714
  Transmission Date: 20150326
  Serious: Yes (Disabling)
  Sender: FDA-Public Use
  Company Number: None

PATIENT
  Age: 40 Year
  Sex: Male
  Weight: 74.84 kg

DRUGS (2)
  1. LEVOTHYROXINE GENERIC [Suspect]
     Active Substance: LEVOTHYROXINE
     Indication: AUTOIMMUNE THYROIDITIS
     Dosage: 1 PILL ONCE DAILY TAKEN BY MOUTH
     Route: 048
     Dates: start: 20140711, end: 20140712
  2. SYNTHROID [Suspect]
     Active Substance: LEVOTHYROXINE SODIUM

REACTIONS (18)
  - Hunger [None]
  - Tachyphrenia [None]
  - Heart rate increased [None]
  - Disturbance in attention [None]
  - Dysgraphia [None]
  - Euphoric mood [None]
  - Tremor [None]
  - Paraesthesia [None]
  - Slow response to stimuli [None]
  - Reading disorder [None]
  - Irritability [None]
  - Product substitution issue [None]
  - Respiratory rate increased [None]
  - Dizziness [None]
  - Memory impairment [None]
  - Fatigue [None]
  - Nausea [None]
  - Mood altered [None]

NARRATIVE: CASE EVENT DATE: 20140712
